FAERS Safety Report 14347020 (Version 1)
Quarter: 2018Q1

REPORT INFORMATION
  Report Type: Spontaneous
  Country: GB (occurrence: GB)
  Receive Date: 20180103
  Receipt Date: 20180103
  Transmission Date: 20180509
  Serious: Yes (Other)
  Sender: FDA-Public Use
  Company Number: GB-BAYER-2017-250144

PATIENT
  Age: 40 Year
  Sex: Female
  Weight: 89.81 kg

DRUGS (2)
  1. CITALOPRAM [Concomitant]
     Active Substance: CITALOPRAM HYDROBROMIDE
     Indication: ANXIETY
  2. MIRENA [Suspect]
     Active Substance: LEVONORGESTREL
     Indication: MENORRHAGIA
     Dosage: 20 MCG/24HR, CONT
     Route: 015
     Dates: start: 20130601, end: 20171122

REACTIONS (2)
  - Anxiety [Recovered/Resolved]
  - Claustrophobia [Recovered/Resolved]

NARRATIVE: CASE EVENT DATE: 2015
